FAERS Safety Report 15200680 (Version 2)
Quarter: 2018Q3

REPORT INFORMATION
  Report Type: Spontaneous
  Country: BR (occurrence: BR)
  Receive Date: 20180726
  Receipt Date: 20180730
  Transmission Date: 20181010
  Serious: Yes (Death, Hospitalization, Other)
  Sender: FDA-Public Use
  Company Number: BR-009507513-1807BRA008745

PATIENT
  Age: 69 Year
  Sex: Male

DRUGS (1)
  1. PEMBROLIZUMAB. [Suspect]
     Active Substance: PEMBROLIZUMAB
     Indication: COLORECTAL ADENOCARCINOMA
     Dosage: 10 MG/KG, EVERY 2 WEEKS

REACTIONS (2)
  - Product use in unapproved indication [Unknown]
  - Acute interstitial pneumonitis [Fatal]
